FAERS Safety Report 9774145 (Version 2)
Quarter: 2018Q1

REPORT INFORMATION
  Report Type: Report from Study
  Country: US (occurrence: US)
  Receive Date: 20131220
  Receipt Date: 20180323
  Transmission Date: 20180509
  Serious: Yes (Other)
  Sender: FDA-Public Use
  Company Number: US-ROCHE-1319334

PATIENT
  Sex: Male
  Weight: 20.2 kg

DRUGS (7)
  1. NUTROPIN AQ [Suspect]
     Active Substance: SOMATROPIN
     Route: 058
  2. NUTROPIN AQ [Suspect]
     Active Substance: SOMATROPIN
     Indication: BODY HEIGHT BELOW NORMAL
     Route: 058
     Dates: end: 20131021
  3. NUTROPIN AQ [Suspect]
     Active Substance: SOMATROPIN
     Route: 058
  4. FOCALIN XR [Concomitant]
     Active Substance: DEXMETHYLPHENIDATE HYDROCHLORIDE
     Route: 065
  5. INTUNIV [Concomitant]
     Active Substance: GUANFACINE HYDROCHLORIDE
     Route: 065
     Dates: start: 2013
  6. CONCERTA [Concomitant]
     Active Substance: METHYLPHENIDATE HYDROCHLORIDE
     Route: 048
  7. NUTROPIN AQ [Suspect]
     Active Substance: SOMATROPIN
     Indication: GROWTH HORMONE DEFICIENCY
     Route: 058
     Dates: start: 20131021

REACTIONS (4)
  - Speech disorder developmental [Unknown]
  - Attention deficit/hyperactivity disorder [Unknown]
  - Pain [Unknown]
  - Device damage [Unknown]
